FAERS Safety Report 9414342 (Version 3)
Quarter: 2013Q3

REPORT INFORMATION
  Report Type: Spontaneous
  Country: US (occurrence: US)
  Receive Date: 20130723
  Receipt Date: 20130808
  Transmission Date: 20140515
  Serious: Yes (Hospitalization, Other)
  Sender: FDA-Public Use
  Company Number: US-BAXTER-2013BAX028034

PATIENT
  Sex: Male

DRUGS (1)
  1. DIANEAL LOW CALCIUM [Suspect]
     Indication: PERITONEAL DIALYSIS
     Route: 033
     Dates: start: 201210

REACTIONS (8)
  - Skin discolouration [Recovering/Resolving]
  - Cardiac failure [Recovering/Resolving]
  - Renal failure [Not Recovered/Not Resolved]
  - Myocardial infarction [Recovering/Resolving]
  - Anuria [Not Recovered/Not Resolved]
  - Retching [Recovering/Resolving]
  - Fungal infection [Recovering/Resolving]
  - Swelling [Recovering/Resolving]
